FAERS Safety Report 10954495 (Version 2)
Quarter: 2015Q2

REPORT INFORMATION
  Report Type: Report from Study
  Country: JP (occurrence: JP)
  Receive Date: 20150325
  Receipt Date: 20150522
  Transmission Date: 20150821
  Serious: No
  Sender: FDA-Public Use
  Company Number: JP-EISAI MEDICAL RESEARCH-EC-2015-005277

PATIENT
  Age: 89 Year
  Sex: Male

DRUGS (11)
  1. MEMARY [Suspect]
     Active Substance: MEMANTINE HYDROCHLORIDE
     Route: 048
     Dates: start: 20140610, end: 20140805
  2. MEMARY [Suspect]
     Active Substance: MEMANTINE HYDROCHLORIDE
     Route: 048
     Dates: start: 20140923
  3. ARICEPT [Suspect]
     Active Substance: DONEPEZIL HYDROCHLORIDE
     Route: 048
     Dates: start: 20140401, end: 20140901
  4. ARICEPT [Suspect]
     Active Substance: DONEPEZIL HYDROCHLORIDE
     Route: 048
     Dates: start: 20140902
  5. MEMARY [Suspect]
     Active Substance: MEMANTINE HYDROCHLORIDE
     Route: 048
     Dates: start: 20140902, end: 20140922
  6. CRESTOR [Concomitant]
     Active Substance: ROSUVASTATIN CALCIUM
  7. AMLODIPINE [Concomitant]
     Active Substance: AMLODIPINE BESYLATE
  8. BAYASPIRIN [Concomitant]
     Active Substance: ASPIRIN
  9. ARICEPT [Suspect]
     Active Substance: DONEPEZIL HYDROCHLORIDE
     Indication: DEMENTIA ALZHEIMER^S TYPE
     Route: 048
     Dates: start: 20140318, end: 20140331
  10. MEMARY [Suspect]
     Active Substance: MEMANTINE HYDROCHLORIDE
     Indication: DEMENTIA ALZHEIMER^S TYPE
     Route: 048
     Dates: start: 20140318, end: 20140609
  11. UNISIA [Concomitant]
     Active Substance: AMLODIPINE BESYLATE\CANDESARTAN CILEXETIL

REACTIONS (1)
  - Anger [Recovered/Resolved]

NARRATIVE: CASE EVENT DATE: 20140805
